FAERS Safety Report 4714084-4 (Version None)
Quarter: 2005Q3

REPORT INFORMATION
  Report Type: 
  Country: None (occurrence: None)
  Receive Date: 20050712
  Receipt Date: 20050627
  Transmission Date: 20060218
  Serious: Yes (Other)
  Sender: FDA-Public Use
  Company Number: GBS050517360

PATIENT
  Sex: Female

DRUGS (3)
  1. PROZAC [Suspect]
     Dates: start: 20050201
  2. LIPITOR [Concomitant]
  3. SOLPADEINE [Concomitant]

REACTIONS (3)
  - BLINDNESS TRANSIENT [None]
  - BLINDNESS UNILATERAL [None]
  - DIZZINESS [None]
